FAERS Safety Report 12719595 (Version 2)
Quarter: 2016Q3

REPORT INFORMATION
  Report Type: Spontaneous
  Country: FR (occurrence: FR)
  Receive Date: 20160907
  Receipt Date: 20160907
  Transmission Date: 20161109
  Serious: Yes (Hospitalization)
  Sender: FDA-Public Use
  Company Number: PHHY2016FR121189

PATIENT
  Age: 62 Year
  Sex: Female

DRUGS (11)
  1. CARDENSIEL [Concomitant]
     Active Substance: BISOPROLOL FUMARATE
     Indication: PRODUCT USED FOR UNKNOWN INDICATION
     Dosage: 1.25 MG, UNK
     Route: 065
  2. MIANSERINE [Concomitant]
     Active Substance: MIANSERIN HYDROCHLORIDE
     Indication: PRODUCT USED FOR UNKNOWN INDICATION
     Dosage: 10 MG/DL, QOD
     Route: 065
  3. SOLIAN [Concomitant]
     Active Substance: AMISULPRIDE
     Indication: PRODUCT USED FOR UNKNOWN INDICATION
     Dosage: 50 MG, QOD
     Route: 065
  4. SERESTA [Suspect]
     Active Substance: OXAZEPAM
     Indication: PRODUCT USED FOR UNKNOWN INDICATION
     Dosage: 160 MG, ONCE
     Route: 048
     Dates: start: 20160723, end: 20160723
  5. BISOPROLOL FUMARATE. [Suspect]
     Active Substance: BISOPROLOL FUMARATE
     Indication: PRODUCT USED FOR UNKNOWN INDICATION
     Dosage: 11.25 MG, ONCE
     Route: 048
     Dates: start: 20160723, end: 20160723
  6. SPIRONOLACTONE. [Suspect]
     Active Substance: SPIRONOLACTONE
     Indication: PRODUCT USED FOR UNKNOWN INDICATION
     Dosage: 750 MG, ONCE
     Route: 048
     Dates: start: 20160723, end: 20160723
  7. CHLOROQUINE. [Suspect]
     Active Substance: CHLOROQUINE
     Indication: PRODUCT USED FOR UNKNOWN INDICATION
     Dosage: 3400 MG, ONCE/SINGLE
     Route: 048
     Dates: start: 20160723, end: 20160723
  8. CLIMASTON [Concomitant]
     Active Substance: ESTRADIOL\PROGESTERONE
     Indication: PRODUCT USED FOR UNKNOWN INDICATION
     Route: 065
  9. RITALINE LP [Suspect]
     Active Substance: METHYLPHENIDATE HYDROCHLORIDE
     Indication: PRODUCT USED FOR UNKNOWN INDICATION
     Dosage: 20 MG, ONCE/SINGLE
     Route: 048
     Dates: start: 20160723, end: 20160723
  10. ZOPICLONE [Suspect]
     Active Substance: ZOPICLONE
     Indication: PRODUCT USED FOR UNKNOWN INDICATION
     Dosage: 67.5 MG, ONCE
     Route: 048
     Dates: start: 20160723, end: 20160723
  11. MIANSERIN HYDROCHLORIDE [Suspect]
     Active Substance: MIANSERIN HYDROCHLORIDE
     Indication: PRODUCT USED FOR UNKNOWN INDICATION
     Dosage: 750 MG, ONCE
     Route: 048
     Dates: start: 20160723, end: 20160723

REACTIONS (9)
  - Hypokalaemia [Recovered/Resolved]
  - Electrocardiogram QRS complex prolonged [Unknown]
  - Coma [Recovered/Resolved]
  - Language disorder [Unknown]
  - Miosis [Unknown]
  - Ventricular tachycardia [Recovered/Resolved]
  - Cardiogenic shock [Recovered/Resolved]
  - Confusional state [Recovered/Resolved]
  - Cardio-respiratory arrest [Recovered/Resolved]

NARRATIVE: CASE EVENT DATE: 20160723
